FAERS Safety Report 5332443-6 (Version None)
Quarter: 2007Q2

REPORT INFORMATION
  Report Type: 
  Country: None (occurrence: None)
  Receive Date: 20070523
  Receipt Date: 20070518
  Transmission Date: 20071010
  Serious: Yes (Hospitalization)
  Sender: FDA-Public Use
  Company Number: DE-JNJFOC-20070303632

PATIENT
  Age: 66 Year
  Sex: Female

DRUGS (6)
  1. TAVANIC [Suspect]
     Indication: BRONCHITIS
     Route: 048
     Dates: start: 20070306, end: 20070307
  2. TAVANIC [Suspect]
     Indication: PHARYNGITIS BACTERIAL
     Route: 048
     Dates: start: 20070306, end: 20070307
  3. PROSPAN [Concomitant]
     Indication: PHARYNGITIS
     Route: 048
  4. PROSPAN [Concomitant]
     Indication: BRONCHITIS
     Route: 048
  5. LEVAMISOLE [Concomitant]
     Indication: BRONCHITIS
     Route: 065
  6. LEVAMISOLE [Concomitant]
     Indication: PHARYNGITIS
     Route: 065

REACTIONS (6)
  - BLOOD PRESSURE DECREASED [None]
  - CHEST DISCOMFORT [None]
  - DYSPNOEA [None]
  - ELECTROCARDIOGRAM CHANGE [None]
  - FATIGUE [None]
  - TACHYCARDIA [None]
